FAERS Safety Report 6363300-4 (Version None)
Quarter: 2009Q3

REPORT INFORMATION
  Report Type: 
  Country: None (occurrence: None)
  Receive Date: 20090919
  Receipt Date: 20090623
  Transmission Date: 20100115
  Serious: No
  Sender: FDA-Public Use
  Company Number: US-ABBOTT-09P-163-0581575-00

PATIENT
  Sex: Female
  Weight: 66.738 kg

DRUGS (20)
  1. HUMIRA [Suspect]
     Indication: RHEUMATOID ARTHRITIS
     Route: 058
     Dates: start: 20090601, end: 20090601
  2. HUMIRA [Suspect]
     Dates: start: 20080801, end: 20090601
  3. METHOTREXATE [Concomitant]
     Indication: DRUG USE FOR UNKNOWN INDICATION
     Route: 048
  4. CARAPROFEN [Concomitant]
     Indication: ARTHRITIS
  5. SYNTHROID [Concomitant]
     Indication: DRUG USE FOR UNKNOWN INDICATION
  6. FOLIC ACID [Concomitant]
     Indication: DRUG USE FOR UNKNOWN INDICATION
     Route: 048
  7. PREVACID [Concomitant]
     Indication: DRUG USE FOR UNKNOWN INDICATION
  8. VAGIFEM [Concomitant]
     Indication: DRUG USE FOR UNKNOWN INDICATION
  9. RESTASIS [Concomitant]
     Indication: DRY EYE
     Route: 031
  10. VIT C [Concomitant]
     Indication: DRUG USE FOR UNKNOWN INDICATION
     Dosage: PRN
  11. CALCIUM [Concomitant]
     Indication: DRUG USE FOR UNKNOWN INDICATION
  12. EFA [Concomitant]
     Indication: DRUG USE FOR UNKNOWN INDICATION
  13. GRAPE SEED [Concomitant]
     Indication: DRUG USE FOR UNKNOWN INDICATION
  14. SELENIUM [Concomitant]
     Indication: DRUG USE FOR UNKNOWN INDICATION
  15. VITAMIN B COMPLEX CAP [Concomitant]
     Indication: DRUG USE FOR UNKNOWN INDICATION
  16. D3 [Concomitant]
     Indication: DRUG USE FOR UNKNOWN INDICATION
  17. ENZIMAR [Concomitant]
     Indication: DRUG USE FOR UNKNOWN INDICATION
  18. GLUCOSAMINE + CHONDROITIN [Concomitant]
     Indication: DRUG USE FOR UNKNOWN INDICATION
  19. ADALIMUMAB (HUMIRA PRE-FILLED SYRINGE) [Concomitant]
     Indication: RHEUMATOID ARTHRITIS
     Route: 058
     Dates: start: 20080801, end: 20090601
  20. ADALIMUMAB (HUMIRA PRE-FILLED SYRINGE) [Concomitant]
     Dates: start: 20090601

REACTIONS (2)
  - DRUG DOSE OMISSION [None]
  - INJECTION SITE PAPULE [None]
